FAERS Safety Report 13721291 (Version 2)
Quarter: 2017Q3

REPORT INFORMATION
  Report Type: Spontaneous
  Country: NL (occurrence: NL)
  Receive Date: 20170706
  Receipt Date: 20170717
  Transmission Date: 20171127
  Serious: Yes (Death, Other)
  Sender: FDA-Public Use
  Company Number: NL-AUROBINDO-AUR-APL-2017-36728

PATIENT
  Age: 76 Year
  Sex: Female
  Weight: 70 kg

DRUGS (12)
  1. COLECALCIFEROL CAPSULE    400IE [Concomitant]
     Route: 048
     Dates: start: 20170421
  2. FLUCLOXACILLINE CAPSULE 500MG [Suspect]
     Active Substance: FLUCLOXACILLIN
     Indication: ERYSIPELAS
     Dosage: 3D1GRAM
     Route: 048
     Dates: start: 20170324, end: 20170405
  3. CIPROFLOXACIN FILM-COATED TABLETS [Suspect]
     Active Substance: CIPROFLOXACIN
     Indication: URINARY TRACT INFECTION
     Dosage: 2D500MG
     Route: 048
     Dates: start: 20170413, end: 20170424
  4. MACROGOL [Concomitant]
     Active Substance: POLYETHYLENE GLYCOLS
     Indication: PRODUCT USED FOR UNKNOWN INDICATION
     Route: 048
     Dates: start: 20170224
  5. COLEXKLYSMA [Concomitant]
     Indication: PRODUCT USED FOR UNKNOWN INDICATION
     Route: 054
     Dates: start: 20170421
  6. COLECALCIFEROL [Concomitant]
     Active Substance: CHOLECALCIFEROL
     Indication: PRODUCT USED FOR UNKNOWN INDICATION
     Route: 048
     Dates: start: 20170421
  7. LACTULOSE STROOP 670MG/ML (500MG/G) [Concomitant]
     Dosage: IPV MACROGOL/ELECTROLYTEN
     Route: 048
     Dates: start: 20170421
  8. CIPROFLOXACINE TABLET 500MG [Suspect]
     Active Substance: CIPROFLOXACIN
     Indication: URINARY TRACT INFECTION
     Dosage: 2D500MG
     Route: 048
     Dates: start: 20170413, end: 20170424
  9. COLEX KLYSMA [Concomitant]
     Route: 054
     Dates: start: 20170421
  10. LACTULOSESTROOP PCH 667MG/ML [Concomitant]
     Active Substance: LACTULOSE
     Indication: PRODUCT USED FOR UNKNOWN INDICATION
     Dosage: IPV MACROGOL/ELECTROLYTEN
     Route: 048
     Dates: start: 20170421
  11. FLUCLOXACILLINE 500 MG CAPSULE, HARD [Suspect]
     Active Substance: FLUCLOXACILLIN
     Indication: ERYSIPELAS
     Dosage: 3D1GRAM
     Route: 048
     Dates: start: 20170324, end: 20170405
  12. MACROGOL/ZOUTEN CONC. VOOR DRANK [Concomitant]
     Route: 048
     Dates: start: 20170224

REACTIONS (1)
  - Hepatic failure [Fatal]

NARRATIVE: CASE EVENT DATE: 20170421
